FAERS Safety Report 4720963-4 (Version None)
Quarter: 2005Q3

REPORT INFORMATION
  Report Type: 
  Country: None (occurrence: None)
  Receive Date: 20050720
  Receipt Date: 20050708
  Transmission Date: 20060218
  Serious: Yes (Hospitalization)
  Sender: FDA-Public Use
  Company Number: DEU-2005-0001553

PATIENT
  Age: 83 Year
  Sex: Female
  Weight: 76 kg

DRUGS (8)
  1. OXYGESIC 5 MG(OXY CR TAB 5 MG) (OXYCODONE HYDROCHLORIDE) CR TABLET [Suspect]
     Indication: PAIN
     Dosage: 5 MG, DAILY, ORAL
     Route: 048
     Dates: start: 20050531, end: 20050614
  2. DOXEPIN HCL [Suspect]
  3. DIAZEPAM [Suspect]
  4. DICLAC (DICLOFENAC SODIUM) [Concomitant]
  5. DICLOFENAC (DICLOFENAC) [Concomitant]
  6. METAMIZOL NATRIUM [Concomitant]
  7. CAPTOPRIL [Concomitant]
  8. OXYBUTYNIN CHLORIDE [Concomitant]

REACTIONS (3)
  - CIRCULATORY COLLAPSE [None]
  - DRUG INTERACTION [None]
  - HEAT STROKE [None]
